FAERS Safety Report 17248125 (Version 1)
Quarter: 2020Q1

REPORT INFORMATION
  Report Type: Spontaneous
  Country: US (occurrence: US)
  Receive Date: 20200108
  Receipt Date: 20200108
  Transmission Date: 20200409
  Serious: Yes (Hospitalization)
  Sender: FDA-Public Use
  Company Number: US-JNJFOC-20200106293

PATIENT
  Age: 51 Year
  Sex: Male
  Weight: 119.4 kg

DRUGS (1)
  1. INVOKANA [Suspect]
     Active Substance: CANAGLIFLOZIN
     Indication: TYPE 2 DIABETES MELLITUS
     Route: 048
     Dates: end: 20180615

REACTIONS (4)
  - Toe amputation [Unknown]
  - Sepsis [Unknown]
  - Cellulitis [Unknown]
  - Gas gangrene [Unknown]

NARRATIVE: CASE EVENT DATE: 201805
